FAERS Safety Report 4368903-4 (Version None)
Quarter: 2004Q2

REPORT INFORMATION
  Report Type: 
  Country: None (occurrence: None)
  Receive Date: 20040525
  Receipt Date: 20040510
  Transmission Date: 20050107
  Serious: Yes (Death, Hospitalization, Other)
  Sender: FDA-Public Use
  Company Number: 188835

PATIENT
  Sex: Female
  Weight: 45.3597 kg

DRUGS (18)
  1. AVONEX [Suspect]
     Indication: MULTIPLE SCLEROSIS
     Dosage: 30 MCG QW IM
     Route: 030
     Dates: start: 19971104, end: 20021003
  2. PAIN MEDICATION [Concomitant]
  3. BACLOFEN [Concomitant]
  4. AMANTADINE HCL [Concomitant]
  5. ROCEPHIN [Concomitant]
  6. LEVAQUIN [Concomitant]
  7. PHENERGAN [Concomitant]
  8. ATIVAN [Concomitant]
  9. PROGESTERONE [Concomitant]
  10. DITROPAN [Concomitant]
  11. MUSCLE RELAXER [Concomitant]
  12. MACROBID [Concomitant]
  13. QUININE SULFATE [Concomitant]
  14. EVISTA [Concomitant]
  15. LORTAB [Concomitant]
  16. ANTIDEPRESSANTS [Concomitant]
  17. KLONOPIN [Concomitant]
  18. LEVAQUIN [Concomitant]

REACTIONS (30)
  - ANXIETY [None]
  - APTYALISM [None]
  - ARTHRALGIA [None]
  - ASPIRATION [None]
  - BLOOD THYROID STIMULATING HORMONE INCREASED [None]
  - BREATH SOUNDS DECREASED [None]
  - CATHETER RELATED COMPLICATION [None]
  - DISEASE PROGRESSION [None]
  - DYSARTHRIA [None]
  - EATING DISORDER [None]
  - FEELING ABNORMAL [None]
  - HEART RATE INCREASED [None]
  - INTESTINAL FUNCTIONAL DISORDER [None]
  - JOINT RANGE OF MOTION DECREASED [None]
  - LETHARGY [None]
  - MULTIPLE SCLEROSIS [None]
  - MUSCLE SPASMS [None]
  - MUSCLE TIGHTNESS [None]
  - NECK PAIN [None]
  - NEUROGENIC BLADDER [None]
  - OSTEOPOROSIS [None]
  - PAIN IN EXTREMITY [None]
  - PERONEAL NERVE PALSY [None]
  - PITTING OEDEMA [None]
  - PSEUDOMONAS INFECTION [None]
  - RHONCHI [None]
  - SPUTUM DISCOLOURED [None]
  - THYROID DISORDER [None]
  - UPPER RESPIRATORY TRACT INFECTION [None]
  - URINARY TRACT INFECTION [None]
